FAERS Safety Report 19287828 (Version 1)
Quarter: 2021Q2

REPORT INFORMATION
  Report Type: Spontaneous
  Country: US (occurrence: US)
  Receive Date: 20210522
  Receipt Date: 20210522
  Transmission Date: 20210717
  Serious: Yes (Other)
  Sender: FDA-Public Use
  Company Number: US-ABBVIE-21K-163-3915073-00

PATIENT
  Sex: Female

DRUGS (1)
  1. LEVOTHYROXINE. [Suspect]
     Active Substance: LEVOTHYROXINE
     Indication: HYPOTHYROIDISM
     Route: 048

REACTIONS (7)
  - Skin discolouration [Unknown]
  - Malaise [Unknown]
  - Pyrexia [Unknown]
  - Neoplasm malignant [Unknown]
  - Depression [Unknown]
  - Drug hypersensitivity [Unknown]
  - Alopecia [Unknown]
